FAERS Safety Report 10443317 (Version 2)
Quarter: 2014Q3

REPORT INFORMATION
  Report Type: Spontaneous
  Country: DE (occurrence: DE)
  Receive Date: 20140910
  Receipt Date: 20140924
  Transmission Date: 20150326
  Serious: Yes (Hospitalization)
  Sender: FDA-Public Use
  Company Number: DE-UCBSA-2014011084

PATIENT
  Age: 41 Year
  Sex: Male
  Weight: 93 kg

DRUGS (3)
  1. PHENHYDAN [Suspect]
     Active Substance: PHENYTOIN
     Dosage: 100 MG, ONE TIME DOSE (1 TABLET BY MISTAKE)
     Route: 048
     Dates: start: 20140830, end: 20140830
  2. KEPPRA [Suspect]
     Active Substance: LEVETIRACETAM
     Dosage: 2000 MG, ONE TIME DOSE (2 TABLET OF 1000 MG BY MISTAKE)
     Route: 048
     Dates: start: 20140830, end: 20140830
  3. VIMPAT [Suspect]
     Active Substance: LACOSAMIDE
     Dosage: 150 MG, ONE TIME DOSE (1 TABLET BY MISTAKE)
     Route: 048
     Dates: start: 20140830, end: 20140830

REACTIONS (1)
  - Accidental exposure to product [Unknown]

NARRATIVE: CASE EVENT DATE: 20140830
